FAERS Safety Report 8843650 (Version 3)
Quarter: 2013Q1

REPORT INFORMATION
  Report Type: Spontaneous
  Country: ES (occurrence: ES)
  Receive Date: 20121016
  Receipt Date: 20130215
  Transmission Date: 20140127
  Serious: Yes (Death)
  Sender: FDA-Public Use
  Company Number: ES-ROCHE-1142357

PATIENT
  Age: 55 Year
  Sex: Male

DRUGS (9)
  1. MABTHERA [Suspect]
     Indication: CHRONIC LYMPHOCYTIC LEUKAEMIA
     Route: 042
     Dates: start: 20080310, end: 20120515
  2. BENDAMUSTINA [Suspect]
     Indication: CHRONIC LYMPHOCYTIC LEUKAEMIA
     Route: 042
     Dates: start: 20111215, end: 20120517
  3. FLUDARABINE [Suspect]
     Indication: CHRONIC LYMPHOCYTIC LEUKAEMIA
     Route: 042
     Dates: start: 20090310, end: 20091007
  4. CYCLOPHOSPHAMIDE [Concomitant]
     Indication: CHRONIC LYMPHOCYTIC LEUKAEMIA
     Route: 042
     Dates: start: 20090310, end: 20091007
  5. ENALAPRIL [Concomitant]
     Indication: HYPERTENSION
     Route: 048
     Dates: start: 20090502, end: 20120925
  6. ROSUVASTATIN [Concomitant]
     Indication: HYPERCHOLESTEROLAEMIA
     Route: 048
     Dates: start: 20091204, end: 20120925
  7. METFORMIN [Concomitant]
     Indication: DIABETES MELLITUS
     Route: 048
     Dates: start: 20110801, end: 20120925
  8. CO-TRIMOXAZOLE [Concomitant]
     Indication: PROPHYLAXIS
     Route: 048
     Dates: start: 20090310, end: 20120925
  9. LAMIVUDINE [Concomitant]
     Route: 065
     Dates: start: 200901, end: 200910

REACTIONS (4)
  - Hepatic failure [Fatal]
  - Hepatitis B [Fatal]
  - Anaemia [Unknown]
  - Thrombocytopenia [Unknown]
